FAERS Safety Report 6765583-5 (Version None)
Quarter: 2010Q2

REPORT INFORMATION
  Report Type: 
  Country: None (occurrence: None)
  Receive Date: 20100611
  Receipt Date: 20100602
  Transmission Date: 20101027
  Serious: Yes (Hospitalization)
  Sender: FDA-Public Use
  Company Number: US-MYLANLABS-2010S1009852

PATIENT
  Age: 42 Year
  Sex: Female
  Weight: 82.01 kg

DRUGS (9)
  1. KETOCONAZOLE [Suspect]
     Indication: HODGKIN'S DISEASE
     Route: 048
     Dates: start: 20100501, end: 20100527
  2. SGN-36 (CAC10-VCMMAE) [Suspect]
     Indication: HODGKIN'S DISEASE
     Dates: start: 20100413, end: 20100513
  3. IMIPRAMINE [Concomitant]
     Dates: start: 19920701
  4. BACTRIM [Concomitant]
     Dates: start: 20090501
  5. VALACYCLOVIR [Concomitant]
     Dates: start: 20100101
  6. LORAZEPAM [Concomitant]
     Dates: start: 20080401
  7. MAGNESIUM OXIDE [Concomitant]
     Dates: start: 20051201
  8. LEVOTHYROXINE SODIUM [Concomitant]
     Dates: start: 19990601
  9. MULTI-VITAMIN [Concomitant]
     Dates: start: 20051201

REACTIONS (1)
  - DEHYDRATION [None]
